FAERS Safety Report 20403780 (Version 2)
Quarter: 2022Q1

REPORT INFORMATION
  Report Type: Report from Study
  Country: US (occurrence: US)
  Receive Date: 20220131
  Receipt Date: 20220303
  Transmission Date: 20220424
  Serious: Yes (Hospitalization, Other)
  Sender: FDA-Public Use
  Company Number: US-ABBVIE-20K-163-3437288-00

PATIENT
  Sex: Male

DRUGS (7)
  1. HUMIRA [Suspect]
     Active Substance: ADALIMUMAB
     Indication: Crohn^s disease
     Dosage: DAY 1
     Route: 058
     Dates: start: 20200603, end: 20200603
  2. HUMIRA [Suspect]
     Active Substance: ADALIMUMAB
     Dosage: DAY 15
     Route: 058
     Dates: start: 20200617, end: 20200617
  3. HUMIRA [Suspect]
     Active Substance: ADALIMUMAB
     Indication: Crohn^s disease
     Dosage: DAY 29
     Route: 058
     Dates: start: 20200701
  4. HUMIRA [Suspect]
     Active Substance: ADALIMUMAB
     Route: 058
     Dates: end: 2021
  5. HUMIRA [Suspect]
     Active Substance: ADALIMUMAB
     Route: 058
     Dates: start: 202107, end: 202112
  6. HUMIRA [Suspect]
     Active Substance: ADALIMUMAB
     Route: 058
     Dates: end: 20220211
  7. HUMIRA [Suspect]
     Active Substance: ADALIMUMAB
     Route: 058
     Dates: start: 2022

REACTIONS (23)
  - Rotator cuff syndrome [Unknown]
  - Decreased appetite [Recovered/Resolved]
  - Malaise [Not Recovered/Not Resolved]
  - Muscle strain [Unknown]
  - Fear [Recovered/Resolved]
  - Gastrointestinal sounds abnormal [Not Recovered/Not Resolved]
  - Frequent bowel movements [Unknown]
  - Injection site hypoaesthesia [Recovered/Resolved]
  - Insomnia [Not Recovered/Not Resolved]
  - Sinus congestion [Recovered/Resolved]
  - Flatulence [Unknown]
  - Rectal haemorrhage [Not Recovered/Not Resolved]
  - Abdominal pain [Recovered/Resolved]
  - Injection site swelling [Not Recovered/Not Resolved]
  - Injection site pruritus [Not Recovered/Not Resolved]
  - COVID-19 [Unknown]
  - Arthralgia [Recovered/Resolved]
  - Haematochezia [Not Recovered/Not Resolved]
  - Abdominal distension [Recovered/Resolved]
  - Constipation [Unknown]
  - Fatigue [Not Recovered/Not Resolved]
  - Diarrhoea [Not Recovered/Not Resolved]
  - Abdominal pain [Not Recovered/Not Resolved]

NARRATIVE: CASE EVENT DATE: 20200101
